FAERS Safety Report 12587281 (Version 2)
Quarter: 2016Q3

REPORT INFORMATION
  Report Type: Report from Study
  Country: CA (occurrence: CA)
  Receive Date: 20160725
  Receipt Date: 20160915
  Transmission Date: 20161109
  Serious: No
  Sender: FDA-Public Use
  Company Number: CA-009507513-1607CAN009022

PATIENT
  Sex: Male

DRUGS (1)
  1. ZEPATIER [Suspect]
     Active Substance: ELBASVIR\GRAZOPREVIR
     Indication: HEPATITIS C
     Dosage: 1 DF (100/50 MG), QD
     Route: 048
     Dates: start: 20160606, end: 20160829

REACTIONS (8)
  - Gait disturbance [Unknown]
  - Fatigue [Recovering/Resolving]
  - Nausea [Unknown]
  - Arthropathy [Unknown]
  - Dyspnoea [Unknown]
  - Weight decreased [Unknown]
  - Sleep disorder [Unknown]
  - Renal pain [Unknown]

NARRATIVE: CASE EVENT DATE: 2016
